FAERS Safety Report 6888448-7 (Version None)
Quarter: 2010Q3

REPORT INFORMATION
  Report Type: 
  Country: None (occurrence: None)
  Receive Date: 20100730
  Receipt Date: 20100610
  Transmission Date: 20110219
  Serious: Yes (Hospitalization)
  Sender: FDA-Public Use
  Company Number: IL-NAPPMUNDI-DEU-2009-0005508

PATIENT
  Sex: Male
  Weight: 78 kg

DRUGS (9)
  1. OXY CR TAB [Suspect]
     Indication: CANCER PAIN
     Dosage: 20 MG, BID
     Route: 048
     Dates: start: 20090730, end: 20090806
  2. OXY CR TAB [Suspect]
     Indication: CONSTIPATION
  3. OXYCODONE HCL [Concomitant]
     Indication: CANCER PAIN
  4. OXYCOD                             /00045603/ [Concomitant]
  5. LAXADIN [Concomitant]
  6. XATRAL [Concomitant]
  7. CLEXANE [Concomitant]
  8. ZEFFIX [Concomitant]
  9. PRAMIN [Concomitant]

REACTIONS (1)
  - PNEUMONIA [None]
